FAERS Safety Report 4612408-X (Version None)
Quarter: 2005Q1

REPORT INFORMATION
  Report Type: 
  Country: None (occurrence: None)
  Receive Date: 20050316
  Receipt Date: 20050302
  Transmission Date: 20050727
  Serious: No
  Sender: FDA-Public Use
  Company Number: S04-USA-00905-01

PATIENT
  Age: 28 Year
  Sex: Female
  Weight: 63.5036 kg

DRUGS (7)
  1. CELEXA [Suspect]
     Indication: DEPRESSION
     Dosage: 30 MG QD PO
     Route: 048
     Dates: start: 20030301, end: 20040101
  2. CELEXA [Suspect]
     Indication: DEPRESSION
     Dosage: 40 MG QD PO
     Route: 048
     Dates: start: 20040101
  3. WELLBUTRIN [Concomitant]
  4. ORTHO TRI-CYCLEN [Concomitant]
  5. PRENATAL VITAMINS [Concomitant]
  6. CALCIUM WITH VITAMIN D [Concomitant]
  7. FIBER [Concomitant]

REACTIONS (9)
  - AMNIOTIC FLUID VOLUME DECREASED [None]
  - BETA HAEMOLYTIC STREPTOCOCCAL INFECTION [None]
  - BREECH PRESENTATION [None]
  - CAESAREAN SECTION [None]
  - HAEMATOCRIT DECREASED [None]
  - HEADACHE [None]
  - INSOMNIA [None]
  - POST PROCEDURAL COMPLICATION [None]
  - PREGNANCY [None]
